FAERS Safety Report 6341675-X (Version None)
Quarter: 2009Q3

REPORT INFORMATION
  Report Type: 
  Country: None (occurrence: None)
  Receive Date: 20090902
  Receipt Date: 20090902
  Transmission Date: 20100115
  Serious: Yes (Other)
  Sender: FDA-Public Use
  Company Number: None

PATIENT
  Age: 38 Year
  Sex: Male
  Weight: 88.4514 kg

DRUGS (7)
  1. LAMOTRIGINE [Suspect]
     Indication: BIPOLAR DISORDER
     Dosage: TOTAL DOSE 350 MG QD PO
     Route: 048
     Dates: start: 20090725
  2. ABILIFY [Concomitant]
  3. SEROQUEL [Concomitant]
  4. LEXAPRO [Concomitant]
  5. WELLBUTRIN XL [Concomitant]
  6. AMBIEN [Concomitant]
  7. LAMICTAL [Concomitant]

REACTIONS (3)
  - DIARRHOEA [None]
  - DRUG EFFECT DECREASED [None]
  - VOMITING [None]
